FAERS Safety Report 7719108-8 (Version None)
Quarter: 2011Q3

REPORT INFORMATION
  Report Type: 
  Country: None (occurrence: None)
  Receive Date: 20110830
  Receipt Date: 20110826
  Transmission Date: 20111222
  Serious: Yes (Death, Hospitalization)
  Sender: FDA-Public Use
  Company Number: DE-BRISTOL-MYERS SQUIBB COMPANY-15646854

PATIENT
  Age: 79 Year
  Sex: Male
  Weight: 77 kg

DRUGS (3)
  1. PEMETREXED DISODIUM [Suspect]
     Indication: NON-SMALL CELL LUNG CANCER STAGE IV
     Dosage: LAST DOSE:27JAN11
     Dates: start: 20101230
  2. NECITUMUMAB [Suspect]
     Indication: NON-SMALL CELL LUNG CANCER STAGE IV
     Dosage: LAST DOSE ON 23FEB11
     Dates: start: 20101230
  3. CISPLATIN [Suspect]
     Indication: NON-SMALL CELL LUNG CANCER STAGE IV
     Dosage: LAST DOSE:27JAN11
     Dates: start: 20101230

REACTIONS (2)
  - DUODENAL ULCER [None]
  - DEATH [None]
